FAERS Safety Report 26075198 (Version 1)
Quarter: 2025Q4

REPORT INFORMATION
  Report Type: Other
  Country: US (occurrence: US)
  Receive Date: 20251121
  Receipt Date: 20251121
  Transmission Date: 20260118
  Serious: No
  Sender: VERASTEM
  Company Number: US-VERASTEM-250923US-AFCPK-00600

PATIENT

DRUGS (1)
  1. AVMAPKI FAKZYNJA CO-PACK [Suspect]
     Active Substance: AVUTOMETINIB POTASSIUM\DEFACTINIB HYDROCHLORIDE
     Indication: Ovarian cancer
     Dosage: AVMAPKIT 3 CAPS DAYS 1 AND 4 FOR 3 OUT OF 4, FAKZYNJAT 1 TABLET DAILY FOR 3 OUT OF 4 WEEKS.
     Route: 048
     Dates: start: 20250915

REACTIONS (2)
  - Ocular neoplasm [Unknown]
  - Abdominal discomfort [Recovered/Resolved]
